FAERS Safety Report 8764516 (Version 1)
Quarter: 2012Q4

REPORT INFORMATION
  Report Type: 
  Country: GB (occurrence: GB)
  Receive Date: 20120831
  Receipt Date: 20120831
  Transmission Date: 20130627
  Serious: Yes (Other)
  Sender: FDA-Public Use
  Company Number: GB-B.I. PHARMACEUTICALS,INC./RIDGEFIELD-2012-UK-01125UK

PATIENT
  Age: 37 Year
  Sex: Female

DRUGS (3)
  1. VIRAMUNE [Suspect]
     Indication: HIV INFECTION
     Dosage: 400 mg
     Route: 048
     Dates: start: 201204, end: 20120614
  2. FLUOXETINE [Concomitant]
     Indication: DEPRESSION
     Dosage: 40 mg
     Route: 048
     Dates: start: 2012
  3. TRUVADA [Concomitant]
     Indication: HIV INFECTION
     Dosage: 1 anz
     Route: 048

REACTIONS (4)
  - Abdominal pain [Unknown]
  - Gastrointestinal hypermotility [Unknown]
  - Diarrhoea [Unknown]
  - Medication residue [Unknown]
